FAERS Safety Report 18997785 (Version 1)
Quarter: 2021Q1

REPORT INFORMATION
  Report Type: Spontaneous
  Country: US (occurrence: US)
  Receive Date: 20210311
  Receipt Date: 20210311
  Transmission Date: 20210420
  Serious: Yes (Other)
  Sender: FDA-Public Use
  Company Number: US-MSNLABS-2021MSNLIT00064

PATIENT

DRUGS (7)
  1. TINCTURE OF OPIUM [Interacting]
     Active Substance: OPIUM
     Indication: DIARRHOEA
     Route: 065
  2. OXALIPLATIN. [Concomitant]
     Active Substance: OXALIPLATIN
     Route: 065
  3. LOPERAMIDE [Interacting]
     Active Substance: LOPERAMIDE
     Indication: DIARRHOEA
     Route: 065
  4. ATROPINE/DIPHENOXYLATE [Interacting]
     Active Substance: ATROPINE\DIPHENOXYLATE
     Indication: DIARRHOEA
     Route: 065
  5. COLESTIPOL [Interacting]
     Active Substance: COLESTIPOL
     Indication: DIARRHOEA
     Route: 065
  6. BUDESONIDE. [Interacting]
     Active Substance: BUDESONIDE
     Indication: PRODUCT USED FOR UNKNOWN INDICATION
     Route: 065
  7. CAPECITABINE TABLETS 500 MG [Suspect]
     Active Substance: CAPECITABINE
     Indication: ADENOCARCINOMA OF APPENDIX
     Route: 065

REACTIONS (2)
  - Terminal ileitis [Recovered/Resolved]
  - Product use in unapproved indication [Unknown]
